FAERS Safety Report 5065286-1 (Version None)
Quarter: 2006Q3

REPORT INFORMATION
  Report Type: 
  Country: None (occurrence: None)
  Receive Date: 20060707
  Receipt Date: 20050715
  Transmission Date: 20061208
  Serious: Yes (Other)
  Sender: FDA-Public Use
  Company Number: SUS1-2005-00574

PATIENT
  Age: 19 Year
  Sex: Female

DRUGS (3)
  1. PENTASA [Suspect]
     Indication: CROHN'S DISEASE
     Dosage: 1.5 G, 2X/DAY:BID, ORAL
     Route: 048
     Dates: start: 20050222, end: 20050322
  2. BUDESONIDE [Suspect]
     Dosage: 3 MG, 2X/DAY:BID, ORAL
     Route: 048
     Dates: start: 20050314
  3. MICROGYNON(ETHINYLESTRADIOL, LEVONORGESTREL) [Suspect]
     Dosage: ORAL
     Route: 048
     Dates: end: 20050320

REACTIONS (1)
  - MYOCARDITIS [None]
